FAERS Safety Report 10162973 (Version 1)
Quarter: 2014Q2

REPORT INFORMATION
  Report Type: Spontaneous
  Country: US (occurrence: US)
  Receive Date: 20140509
  Receipt Date: 20140509
  Transmission Date: 20141212
  Serious: No
  Sender: FDA-Public Use
  Company Number: US-PFIZER INC-2014123377

PATIENT
  Sex: Male

DRUGS (4)
  1. CIPROFLOXACIN HCL [Suspect]
     Indication: URINARY TRACT INFECTION
     Dosage: 500 MG, DAILY
  2. OXYCODONE [Interacting]
     Indication: TENSION HEADACHE
     Dosage: 20 MG, UNK
  3. LYRICA [Interacting]
     Indication: FIBROMYALGIA
     Dosage: 150 MG, 2X/DAY
  4. ZANAFLEX [Interacting]
     Indication: MUSCLE SPASMS
     Dosage: 4 MG, DAILY

REACTIONS (1)
  - Drug interaction [Unknown]
